FAERS Safety Report 8554246-1 (Version None)
Quarter: 2012Q3

REPORT INFORMATION
  Report Type: 
  Country: None (occurrence: None)
  Receive Date: 20120731
  Receipt Date: 20120716
  Transmission Date: 20120928
  Serious: Yes (Other)
  Sender: FDA-Public Use
  Company Number: US-ARROW-2012-13126

PATIENT
  Age: 64 Year
  Sex: Female

DRUGS (1)
  1. PREDNISONE TAB [Suspect]
     Indication: TOXOPLASMOSIS
     Dosage: 60 MG, DAILY
     Route: 065

REACTIONS (2)
  - RETINAL VASCULAR OCCLUSION [None]
  - NECROTISING RETINITIS [None]
